FAERS Safety Report 9911160 (Version 5)
Quarter: 2014Q2

REPORT INFORMATION
  Report Type: Spontaneous
  Country: US (occurrence: US)
  Receive Date: 20140219
  Receipt Date: 20140407
  Transmission Date: 20141212
  Serious: Yes (Death, Hospitalization, Other)
  Sender: FDA-Public Use
  Company Number: US-BAXTER-2014BAX007898

PATIENT
  Sex: Male

DRUGS (2)
  1. DIANEAL LOW CALCIUM [Suspect]
     Indication: RENAL FAILURE CHRONIC
     Route: 033
     Dates: start: 2011, end: 20140318
  2. DIANEAL LOW CALCIUM [Suspect]
     Indication: RENAL FAILURE CHRONIC
     Dosage: LAST FILL
     Route: 033
     Dates: start: 2011, end: 20140318

REACTIONS (8)
  - Cardiac arrest [Fatal]
  - Pneumonia [Recovering/Resolving]
  - Haemoglobin decreased [Unknown]
  - Bronchitis [Unknown]
  - Intestinal obstruction [Unknown]
  - General physical health deterioration [Unknown]
  - Dyspnoea [Unknown]
  - Fluid overload [Recovering/Resolving]
